FAERS Safety Report 8001854-2 (Version None)
Quarter: 2011Q4

REPORT INFORMATION
  Report Type: 
  Country: None (occurrence: None)
  Receive Date: 20111222
  Receipt Date: 20111214
  Transmission Date: 20120403
  Serious: Yes (Hospitalization, Other)
  Sender: FDA-Public Use
  Company Number: US-SANOFI-AVENTIS-2011SA081862

PATIENT
  Sex: Male
  Weight: 54.4 kg

DRUGS (1)
  1. PLAVIX [Suspect]

REACTIONS (10)
  - ASTHENIA [None]
  - LOSS OF CONSCIOUSNESS [None]
  - GLUCOSE TOLERANCE IMPAIRED [None]
  - JAUNDICE [None]
  - CHROMATURIA [None]
  - TACHYCARDIA [None]
  - CONVULSION [None]
  - NAUSEA [None]
  - FATIGUE [None]
  - CONFUSIONAL STATE [None]
